FAERS Safety Report 12059780 (Version 1)
Quarter: 2016Q1

REPORT INFORMATION
  Report Type: Spontaneous
  Country: GB (occurrence: GB)
  Receive Date: 20160210
  Receipt Date: 20160210
  Transmission Date: 20160526
  Serious: Yes (Other)
  Sender: FDA-Public Use
  Company Number: GB-AMGEN-GBRSP2016013713

PATIENT
  Age: 44 Year
  Sex: Male
  Weight: 85.6 kg

DRUGS (8)
  1. WARFARIN [Concomitant]
     Active Substance: WARFARIN
  2. KALCIPOS-D [Concomitant]
     Active Substance: CALCIUM CARBONATE\CHOLECALCIFEROL
  3. VENTOLIN [Concomitant]
     Active Substance: ALBUTEROL SULFATE
  4. DIGOXIN. [Concomitant]
     Active Substance: DIGOXIN
  5. RAMIPRIL. [Concomitant]
     Active Substance: RAMIPRIL
  6. PROLIA [Suspect]
     Active Substance: DENOSUMAB
     Indication: OSTEOPOROSIS
     Dosage: 60 MG, UNK
     Route: 058
     Dates: start: 20160123
  7. FLUTICASONE [Concomitant]
     Active Substance: FLUTICASONE\FLUTICASONE PROPIONATE
  8. BISOPROLOL FUMARATE. [Concomitant]
     Active Substance: BISOPROLOL FUMARATE

REACTIONS (2)
  - Anuria [Unknown]
  - Acute kidney injury [Recovering/Resolving]

NARRATIVE: CASE EVENT DATE: 20160123
